FAERS Safety Report 18298872 (Version 1)
Quarter: 2020Q3

REPORT INFORMATION
  Report Type: Spontaneous
  Country: BE (occurrence: BE)
  Receive Date: 20200922
  Receipt Date: 20200922
  Transmission Date: 20201103
  Serious: Yes (Other)
  Sender: FDA-Public Use
  Company Number: BE-CASPER PHARMA LLC-2020CAS000473

PATIENT
  Age: 35 Year
  Sex: Male

DRUGS (5)
  1. SOLU?MEDROL [Suspect]
     Active Substance: METHYLPREDNISOLONE SODIUM SUCCINATE
     Indication: SCLERITIS
     Dosage: 1 GRAM, FOR 3 DAYS
     Route: 042
  2. METHYLPREDNISOLONE. [Suspect]
     Active Substance: METHYLPREDNISOLONE
     Indication: SCLERITIS
     Dosage: UNK
     Route: 048
  3. NEPAFENAC [Concomitant]
     Active Substance: NEPAFENAC
     Indication: SCLERITIS
     Dosage: QD
     Route: 061
  4. AZATHIOPRINE. [Suspect]
     Active Substance: AZATHIOPRINE
     Indication: SCLERITIS
     Dosage: 150 MILLIGRAM, QD
     Route: 065
  5. IBUPROFEN. [Concomitant]
     Active Substance: IBUPROFEN
     Indication: SCLERITIS
     Dosage: 600 MILLIGRAM, TID
     Route: 048

REACTIONS (6)
  - Product use in unapproved indication [Unknown]
  - Bronchopulmonary aspergillosis [Unknown]
  - Osteonecrosis [Unknown]
  - Myopathy [Unknown]
  - Blood lactate dehydrogenase increased [Unknown]
  - Anaemia [Unknown]
